FAERS Safety Report 10615659 (Version 2)
Quarter: 2015Q3

REPORT INFORMATION
  Report Type: Spontaneous
  Country: CH (occurrence: CH)
  Receive Date: 20141201
  Receipt Date: 20150904
  Transmission Date: 20151125
  Serious: Yes (Other)
  Sender: FDA-Public Use
  Company Number: CH-SA-2014SA161252

PATIENT
  Sex: Female

DRUGS (8)
  1. STILNOX [Suspect]
     Active Substance: ZOLPIDEM TARTRATE
     Route: 064
     Dates: start: 20140829, end: 20140829
  2. DUSPATALIN [Concomitant]
     Active Substance: MEBEVERINE HYDROCHLORIDE
     Dosage: 1 PERCENT.
     Dates: start: 20140827, end: 20140901
  3. GARCINIA CAMBOGIA [Concomitant]
     Active Substance: HYDROXYCITRIC ACID
     Route: 064
     Dates: start: 20140525, end: 20140825
  4. ASPEGIC [Suspect]
     Active Substance: ASPIRIN DL-LYSINE
     Dosage: FORM:POWDERS,MEDICINAL/PHARMACEUTICAL SOLID SUBSTANCES
     Route: 064
     Dates: start: 20140823, end: 20140823
  5. PARACETAMOL [Concomitant]
     Active Substance: ACETAMINOPHEN
     Route: 064
  6. BENZAC [Suspect]
     Active Substance: SALICYLIC ACID
     Dosage: FREQUENCY: AS NECESSARY
     Route: 064
  7. DALACIN T [Concomitant]
     Active Substance: CLINDAMYCIN PHOSPHATE
     Route: 064
  8. NEOCITRAN (ACETANILIDE\ASCORBIC ACID\PHENIRAMINE MALEATE\PHENYLEPHRINE HYDROCHLORIDE) [Suspect]
     Active Substance: ACETANILIDE\ASCORBIC ACID\PHENIRAMINE MALEATE\PHENYLEPHRINE HYDROCHLORIDE
     Route: 064
     Dates: start: 20140827, end: 20140830

REACTIONS (3)
  - Exposure during pregnancy [Unknown]
  - Maternal exposure during pregnancy [None]
  - Abortion spontaneous [Unknown]

NARRATIVE: CASE EVENT DATE: 20140914
